FAERS Safety Report 7781648-3 (Version None)
Quarter: 2011Q3

REPORT INFORMATION
  Report Type: 
  Country: None (occurrence: None)
  Receive Date: 20110927
  Receipt Date: 20110922
  Transmission Date: 20111222
  Serious: Yes (Death)
  Sender: FDA-Public Use
  Company Number: US-CELGENEUS-163-21880-11093014

PATIENT
  Sex: Female

DRUGS (11)
  1. METAMUCIL-2 [Concomitant]
     Dosage: 28 PERCENT
     Route: 048
  2. SENNA [Concomitant]
     Dosage: 8.6 MILLIGRAM
     Route: 048
  3. FLOMAX [Concomitant]
     Dosage: .4 MILLIGRAM
     Route: 048
  4. MIRALAX [Concomitant]
     Dosage: 3350
     Route: 048
  5. CALCIUM + D [Concomitant]
     Route: 048
  6. REVLIMID [Suspect]
     Dosage: 5 MILLIGRAM
     Route: 048
     Dates: start: 20110206, end: 20110101
  7. ASPIRIN [Concomitant]
     Dosage: 81 MILLIGRAM
     Route: 048
  8. DIGOXIN [Concomitant]
     Dosage: .125 MILLIGRAM
     Route: 048
  9. MULTI-VITAMINS [Concomitant]
     Route: 048
  10. CARDIZEM [Concomitant]
     Dosage: 60 MILLIGRAM
     Route: 048
  11. CULTURELLE [Concomitant]
     Dosage: 10B CELL
     Route: 048

REACTIONS (1)
  - DEATH [None]
